FAERS Safety Report 6485685-0 (Version None)
Quarter: 2009Q4

REPORT INFORMATION
  Report Type: 
  Country: None (occurrence: None)
  Receive Date: 20091209
  Receipt Date: 20090707
  Transmission Date: 20100525
  Serious: No
  Sender: FDA-Public Use
  Company Number: US-AMGEN-KDL354646

PATIENT
  Sex: Female
  Weight: 64.9 kg

DRUGS (11)
  1. ENBREL [Suspect]
     Indication: PSORIATIC ARTHROPATHY
     Route: 058
     Dates: start: 20090128
  2. ENBREL [Suspect]
     Indication: PSORIASIS
  3. AMBIEN [Concomitant]
     Dates: start: 20040210
  4. MULTI-VITAMINS [Concomitant]
     Dates: start: 20031118
  5. TRANSDERM SCOP [Concomitant]
     Dates: start: 20031118
  6. EFFEXOR [Concomitant]
     Dates: start: 20031118
  7. LEXAPRO [Concomitant]
  8. ESTRADIOL [Concomitant]
  9. PROGESTERONE [Concomitant]
  10. TESTOSTERONE [Concomitant]
  11. KEFLEX [Concomitant]

REACTIONS (2)
  - LOCALISED INFECTION [None]
  - PAIN [None]
